FAERS Safety Report 7903044-8 (Version None)
Quarter: 2011Q4

REPORT INFORMATION
  Report Type: 
  Country: None (occurrence: None)
  Receive Date: 20111104
  Receipt Date: 20111024
  Transmission Date: 20120403
  Serious: Yes (Hospitalization)
  Sender: FDA-Public Use
  Company Number: B0760132A

PATIENT
  Age: 58 Year
  Sex: Female

DRUGS (8)
  1. AMLODIPINE [Concomitant]
  2. OMEGA-3 MARINE TRIGLYCERI [Concomitant]
  3. SIMVASTATIN [Concomitant]
  4. HEMODIALYSIS [Concomitant]
  5. VALACYCLOVIR HYDROCHLORIDE [Suspect]
     Indication: HERPES ZOSTER
     Dosage: 1 GRAM (S) THREE TIMES PER DAY / ORAL
     Route: 048
  6. SEVELAMER CARBONATE [Concomitant]
  7. ERGOCALCIFEROL [Concomitant]
  8. EPOETIN ALFA [Concomitant]

REACTIONS (16)
  - HALLUCINATIONS, MIXED [None]
  - METABOLIC ENCEPHALOPATHY [None]
  - DYSARTHRIA [None]
  - NEUROTOXICITY [None]
  - GAIT DISTURBANCE [None]
  - HEADACHE [None]
  - BLOOD PRESSURE SYSTOLIC INCREASED [None]
  - DISORIENTATION [None]
  - BLOOD CHLORIDE DECREASED [None]
  - CONFUSIONAL STATE [None]
  - BLOOD SODIUM DECREASED [None]
  - MENTAL IMPAIRMENT [None]
  - TOXIC ENCEPHALOPATHY [None]
  - INCOHERENT [None]
  - BLOOD CALCIUM INCREASED [None]
  - DIZZINESS [None]
